FAERS Safety Report 18606057 (Version 1)
Quarter: 2020Q4

REPORT INFORMATION
  Report Type: Spontaneous
  Country: US (occurrence: US)
  Receive Date: 20201211
  Receipt Date: 20201211
  Transmission Date: 20210114
  Serious: Yes (Disabling, Other)
  Sender: FDA-Public Use
  Company Number: US-SANOFI-AVENTIS-2010SA047960

PATIENT

DRUGS (6)
  1. CAPECITABINE. [Concomitant]
     Active Substance: CAPECITABINE
     Indication: RECTAL ADENOCARCINOMA
     Dosage: UNK UNK,QCY
     Route: 041
  2. MAGNESIUM [Concomitant]
     Active Substance: MAGNESIUM
     Indication: PREMEDICATION
     Dosage: UNK UNK,UNK
     Route: 041
  3. CALCIUM [Concomitant]
     Active Substance: CALCIUM
     Indication: PREMEDICATION
     Dosage: UNK UNK,UNK
     Route: 041
  4. OXALIPLATIN. [Suspect]
     Active Substance: OXALIPLATIN
     Indication: RECTAL ADENOCARCINOMA
     Dosage: 85 MG/M2 WAS INFUSED THROUGH A LEFT FOREARM VEIN OVER 2 HOURS
     Route: 041
  5. DEXAMETHASONE. [Concomitant]
     Active Substance: DEXAMETHASONE
     Indication: PREMEDICATION
     Dosage: UNK UNK,UNK
     Route: 041
  6. ONDANSETRON [Concomitant]
     Active Substance: ONDANSETRON
     Indication: PREMEDICATION
     Dosage: UNK UNK,UNK
     Route: 041

REACTIONS (8)
  - Pain in extremity [Recovered/Resolved]
  - Trismus [Recovered/Resolved]
  - Loss of personal independence in daily activities [Unknown]
  - Deafness unilateral [Recovering/Resolving]
  - Oral discomfort [Recovered/Resolved]
  - Facial pain [Recovered/Resolved]
  - Pain in jaw [Recovered/Resolved]
  - Ototoxicity [Recovering/Resolving]
